FAERS Safety Report 21529310 (Version 3)
Quarter: 2022Q4

REPORT INFORMATION
  Report Type: Report from Study
  Country: US (occurrence: US)
  Receive Date: 20221031
  Receipt Date: 20221116
  Transmission Date: 20230112
  Serious: Yes (Hospitalization)
  Sender: FDA-Public Use
  Company Number: US-ABBVIE-4179763

PATIENT
  Sex: Male

DRUGS (5)
  1. IMBRUVICA [Suspect]
     Active Substance: IBRUTINIB
     Indication: Mantle cell lymphoma
     Dosage: FORM STRENGTH 560 MG
     Route: 048
     Dates: start: 20220520
  2. IMBRUVICA [Suspect]
     Active Substance: IBRUTINIB
     Indication: Mantle cell lymphoma
     Dosage: START DATE 2022. FORM STRENGTH 560 MG
     Route: 048
  3. VENCLEXTA [Suspect]
     Active Substance: VENETOCLAX
     Indication: Mantle cell lymphoma
     Dosage: 20MG X 7 DAYS, 50MG X 7 DAYS, 100MG X 7 DAYS, 200MG X 7 DAYS. FORM STRENGTH 100 MG
     Route: 048
     Dates: start: 20220707, end: 20220715
  4. VENCLEXTA [Suspect]
     Active Substance: VENETOCLAX
     Indication: Mantle cell lymphoma
     Route: 048
     Dates: end: 20221014
  5. VENCLEXTA [Suspect]
     Active Substance: VENETOCLAX
     Indication: Mantle cell lymphoma
     Route: 048

REACTIONS (4)
  - Infection [Unknown]
  - Cellulitis [Unknown]
  - Rash [Recovering/Resolving]
  - Full blood count abnormal [Unknown]
